FAERS Safety Report 8128326-9 (Version None)
Quarter: 2012Q1

REPORT INFORMATION
  Report Type: 
  Country: None (occurrence: None)
  Receive Date: 20120210
  Receipt Date: 20120207
  Transmission Date: 20120608
  Serious: No
  Sender: FDA-Public Use
  Company Number: US-PFIZER INC-2012033543

PATIENT
  Sex: Male

DRUGS (2)
  1. GUAIFENESIN [Concomitant]
     Dosage: UNK
  2. LYRICA [Suspect]
     Dosage: 75 MG, 2X/DAY
     Dates: start: 20120101

REACTIONS (2)
  - PAIN [None]
  - DRUG EFFECT DECREASED [None]
